FAERS Safety Report 7004737-X (Version None)
Quarter: 2010Q3

REPORT INFORMATION
  Report Type: 
  Country: None (occurrence: None)
  Receive Date: 20100921
  Receipt Date: 20100907
  Transmission Date: 20110219
  Serious: Yes (Hospitalization)
  Sender: FDA-Public Use
  Company Number: FR-JNJFOC-20100905595

PATIENT
  Sex: Male

DRUGS (8)
  1. IXPRIM [Suspect]
     Indication: PRODUCT USED FOR UNKNOWN INDICATION
     Route: 048
  2. METHADONE HCL [Concomitant]
  3. RIVOTRIL [Concomitant]
  4. NEXIUM [Concomitant]
  5. SERESTA [Concomitant]
  6. MEPRONIZINE [Concomitant]
  7. NOCTAMID [Concomitant]
  8. IXEL [Concomitant]

REACTIONS (2)
  - COLITIS [None]
  - COLITIS MICROSCOPIC [None]
